FAERS Safety Report 9278699 (Version 2)
Quarter: 2013Q2

REPORT INFORMATION
  Report Type: Spontaneous
  Country: US (occurrence: US)
  Receive Date: 20130508
  Receipt Date: 20130610
  Transmission Date: 20140414
  Serious: Yes (Hospitalization, Other)
  Sender: FDA-Public Use
  Company Number: US-PFIZER INC-2013139005

PATIENT
  Age: 72 Year
  Sex: Female
  Weight: 89 kg

DRUGS (12)
  1. PREMARIN [Suspect]
     Indication: VULVOVAGINAL DRYNESS
     Dosage: (30 GRAMS TUBE), 2X/WEEK
     Route: 067
  2. PREMARIN [Suspect]
     Dosage: (42.5 GRAM TUBE)
     Dates: start: 20130501
  3. SERTRALINE [Concomitant]
     Dosage: UNK
  4. VALACYCLOVIR [Concomitant]
     Dosage: UNK
  5. POTASSIUM [Concomitant]
     Dosage: UNK
  6. ASPIRIN [Concomitant]
     Dosage: UNK
  7. METOPROLOL [Concomitant]
     Dosage: UNK
  8. LISINOPRIL [Concomitant]
     Dosage: UNK
  9. FUROSEMIDE [Concomitant]
     Dosage: UNK
  10. FERROUS SULFATE [Concomitant]
     Dosage: UNK
  11. TRAMADOL/ACETAMINOPHEN [Concomitant]
     Dosage: UNK
  12. COUMADIN [Concomitant]
     Dosage: UNK

REACTIONS (3)
  - Cardiac valve disease [Unknown]
  - Dyspnoea [Unknown]
  - Drug ineffective [Unknown]
